FAERS Safety Report 21562208 (Version 2)
Quarter: 2022Q4

REPORT INFORMATION
  Report Type: Spontaneous
  Country: DE (occurrence: DE)
  Receive Date: 20221107
  Receipt Date: 20221201
  Transmission Date: 20230112
  Serious: Yes (Hospitalization, Other)
  Sender: FDA-Public Use
  Company Number: DE-ADRED-05458-02

PATIENT
  Age: 80 Year
  Sex: Female

DRUGS (19)
  1. RAMIPRIL [Suspect]
     Active Substance: RAMIPRIL
     Indication: Product used for unknown indication
     Dosage: 5 MG, 0.5-0-0.5-0, TABLET
     Route: 048
  2. RAMIPRIL [Suspect]
     Active Substance: RAMIPRIL
     Dosage: 5 MG, 0.5-0-0.5-0
     Route: 048
  3. METFORMIN [Suspect]
     Active Substance: METFORMIN HYDROCHLORIDE
     Indication: Product used for unknown indication
     Dosage: 1000 MG, 0.5-0-0.5-0, TABLET
     Route: 048
  4. ALLOPURINOL [Suspect]
     Active Substance: ALLOPURINOL
     Indication: Product used for unknown indication
     Dosage: 300 MG, 0-0-1-0, TABLET
     Route: 048
  5. ALLOPURINOL [Suspect]
     Active Substance: ALLOPURINOL
     Dosage: 300 MG, 0-0-1-0, TABLET
     Route: 048
  6. TORSEMIDE [Suspect]
     Active Substance: TORSEMIDE
     Indication: Product used for unknown indication
     Dosage: 10 MG, 1-0.5-0-0, TABLET
     Route: 048
  7. TORSEMIDE [Suspect]
     Active Substance: TORSEMIDE
     Dosage: 10 MG, 1-0.5-0-0, TABLET
     Route: 048
  8. METOPROLOL [Suspect]
     Active Substance: METOPROLOL
     Indication: Product used for unknown indication
     Dosage: 47.5 MG, 0.5-0-0.5-0, RETARD-TABLET
     Route: 048
  9. PENTAERYTHRITOL TETRANITRATE [Suspect]
     Active Substance: PENTAERYTHRITOL TETRANITRATE
     Indication: Product used for unknown indication
     Dosage: 50 MG, 1-0-0-0, TABLET
     Route: 048
  10. PENTAERYTHRITOL TETRANITRATE [Suspect]
     Active Substance: PENTAERYTHRITOL TETRANITRATE
     Dosage: 50MG, 1-0-0-0, TABLETS
     Route: 048
  11. METFORMIN [Suspect]
     Active Substance: METFORMIN HYDROCHLORIDE
     Indication: Product used for unknown indication
     Dosage: 1000MG, 0.5-0-0.5-0, TABLETS
     Route: 048
  12. ALENDRONIC ACID [Concomitant]
     Active Substance: ALENDRONIC ACID
     Dosage: 70 MG,ACCORDING TO SCHEME,TABLETS
     Route: 048
  13. CHOLECALCIFEROL [Concomitant]
     Active Substance: CHOLECALCIFEROL
     Dosage: 20000 IU, 1-0-0-0, CAPSULES
     Route: 048
  14. ATORVASTATIN [Concomitant]
     Active Substance: ATORVASTATIN
     Dosage: 40 MG, 0-0-1-0, TABLET
     Route: 048
  15. POTASSIUM CHLORIDE [Concomitant]
     Active Substance: POTASSIUM CHLORIDE
     Dosage: 600 MG, 1-1-0-0, CAPSULES
     Route: 048
  16. BENSERAZIDE\LEVODOPA [Concomitant]
     Active Substance: BENSERAZIDE\LEVODOPA
     Dosage: 25/100 MG, 0-0-1-0, TABLET
     Route: 048
  17. BENSERAZIDE\LEVODOPA [Concomitant]
     Active Substance: BENSERAZIDE\LEVODOPA
     Dosage: 25|100 MG, 0-0-1-0, TABLETS
     Route: 048
  18. ASPIRIN [Concomitant]
     Active Substance: ASPIRIN
     Dosage: 100 MG, 1-0-0-0, PROLONGED-RELEASE TABLETS
     Route: 048
  19. POTASSIUM CHLORIDE [Concomitant]
     Active Substance: POTASSIUM CHLORIDE
     Dosage: 600 MG, 1-1-0-0, CAPSULES
     Route: 048

REACTIONS (13)
  - Muscular weakness [Unknown]
  - Dehydration [Unknown]
  - Oedema peripheral [Unknown]
  - Chest pain [Unknown]
  - Angina pectoris [Unknown]
  - Acute kidney injury [Unknown]
  - Headache [Unknown]
  - Dyspnoea [Unknown]
  - Vomiting [Unknown]
  - Nausea [Unknown]
  - Cough [Unknown]
  - Fatigue [Unknown]
  - Pyrexia [Unknown]
